FAERS Safety Report 11251990 (Version 1)
Quarter: 2015Q3

REPORT INFORMATION
  Report Type: Spontaneous
  Country: US (occurrence: US)
  Receive Date: 20150708
  Receipt Date: 20150708
  Transmission Date: 20151125
  Serious: Yes (Hospitalization)
  Sender: FDA-Public Use
  Company Number: US-ELI_LILLY_AND_COMPANY-US201212006899

PATIENT
  Sex: Male

DRUGS (8)
  1. ALIMTA [Suspect]
     Active Substance: PEMETREXED DISODIUM
     Indication: LUNG ADENOCARCINOMA STAGE III
     Dosage: UNK
     Route: 042
     Dates: start: 201208
  2. ALIMTA [Suspect]
     Active Substance: PEMETREXED DISODIUM
     Dosage: UNK
     Route: 042
     Dates: start: 20121203
  3. FOLIC ACID. [Concomitant]
     Active Substance: FOLIC ACID
  4. CISPLATIN. [Concomitant]
     Active Substance: CISPLATIN
     Indication: LUNG ADENOCARCINOMA STAGE III
     Dosage: UNK
     Dates: start: 201208
  5. CORTICOSTEROID NOS [Concomitant]
     Active Substance: CORTICOSTEROID NOS
  6. TAXOL [Concomitant]
     Active Substance: PACLITAXEL
     Indication: LUNG ADENOCARCINOMA STAGE III
  7. VITAMINS NOS [Concomitant]
     Active Substance: VITAMINS
  8. CARBOPLATIN. [Concomitant]
     Active Substance: CARBOPLATIN
     Indication: LUNG ADENOCARCINOMA STAGE III

REACTIONS (1)
  - Thrombocytopenia [Unknown]
